FAERS Safety Report 10154478 (Version 1)
Quarter: 2014Q2

REPORT INFORMATION
  Report Type: Spontaneous
  Country: NZ (occurrence: NZ)
  Receive Date: 20140506
  Receipt Date: 20140506
  Transmission Date: 20141212
  Serious: Yes (Death)
  Sender: FDA-Public Use
  Company Number: NZ-ELI_LILLY_AND_COMPANY-NZ201404009601

PATIENT
  Age: 69 Year
  Sex: Male

DRUGS (5)
  1. PROZAC [Suspect]
     Indication: PRODUCT USED FOR UNKNOWN INDICATION
     Dosage: 50 MG, QD
     Route: 048
  2. CLOZAPINE [Suspect]
     Indication: PSYCHOTIC DISORDER
     Dosage: 37.5 MG, QD
     Route: 048
     Dates: start: 20120724, end: 20130818
  3. CARBIDOPA AND LEVODOPA [Concomitant]
     Indication: PARKINSON^S DISEASE
     Dosage: UNK, QD
     Route: 048
  4. DOCUSATE SODIUM W/SENNOSIDE A+B [Concomitant]
     Indication: CONSTIPATION
     Dosage: UNK, UNKNOWN
     Route: 048
  5. ASPIRIN [Concomitant]
     Indication: PROPHYLAXIS
     Dosage: UNK, QD
     Route: 048

REACTIONS (2)
  - Pneumonia [Fatal]
  - Respiratory distress [Fatal]
